FAERS Safety Report 7551343 (Version 4)
Quarter: 2013Q4

REPORT INFORMATION
  Report Type: Spontaneous
  Country: US (occurrence: US)
  Receive Date: 20100824
  Receipt Date: 20131118
  Transmission Date: 20140711
  Serious: Yes (Life-Threatening, Hospitalization)
  Sender: FDA-Public Use
  Company Number: US-BAYER-201031205NA

PATIENT
  Age: 19 Year
  Sex: Female
  Weight: 75 kg

DRUGS (8)
  1. YAZ [Suspect]
     Indication: MENSTRUATION IRREGULAR
     Dosage: UNK UNK, QD
     Route: 048
     Dates: start: 2007, end: 200901
  2. YAZ [Suspect]
     Indication: ORAL CONTRACEPTION
  3. NEXIUM [Concomitant]
     Indication: GASTROOESOPHAGEAL REFLUX DISEASE
     Dosage: 40 MG, QD
  4. PRENATAL VITAMINS [Concomitant]
  5. KETOROLAC [Concomitant]
     Dosage: 10 MG, UNK
  6. SUCRALFATE [Concomitant]
     Dosage: 1 G, UNK
  7. TORADOL [Concomitant]
     Dosage: UNK
     Dates: start: 20080209, end: 20080214
  8. PROTONIX [Concomitant]
     Dosage: UNK
     Dates: start: 20080214

REACTIONS (5)
  - Cardiac disorder [None]
  - Supraventricular tachycardia [None]
  - Gallbladder disorder [None]
  - Cholecystitis chronic [None]
  - Liver disorder [None]
